FAERS Safety Report 7979996-7 (Version None)
Quarter: 2011Q4

REPORT INFORMATION
  Report Type: 
  Country: None (occurrence: None)
  Receive Date: 20111214
  Receipt Date: 20111101
  Transmission Date: 20120403
  Serious: Yes (Other)
  Sender: FDA-Public Use
  Company Number: US-ROCHE-1001289

PATIENT
  Age: 75 Year
  Sex: Female

DRUGS (13)
  1. GLYBURIDE [Concomitant]
     Indication: DIABETES MELLITUS
  2. COQ10 PLUS PRODUCT NOS [Concomitant]
  3. FUROSEMIDE [Concomitant]
  4. ISOSORBIDE DINITRATE [Concomitant]
  5. ASPIRIN [Concomitant]
  6. SIMVASTATIN [Concomitant]
  7. LOVAZA [Concomitant]
  8. BONIVA [Suspect]
     Route: 048
  9. CALCIUM [Concomitant]
  10. ATENOLOL [Concomitant]
     Indication: HEART RATE INCREASED
  11. POTASSIUM CHLORIDE [Concomitant]
  12. BONIVA [Suspect]
     Indication: OSTEOPOROSIS
     Route: 042
  13. METFORMIN HCL [Concomitant]
     Indication: DIABETES MELLITUS

REACTIONS (2)
  - DYSPEPSIA [None]
  - HEART RATE DECREASED [None]
